FAERS Safety Report 5830588-5 (Version None)
Quarter: 2008Q3

REPORT INFORMATION
  Report Type: 
  Country: None (occurrence: None)
  Receive Date: 20080801
  Receipt Date: 20070731
  Transmission Date: 20090109
  Serious: No
  Sender: FDA-Public Use
  Company Number: US-BRISTOL-MYERS SQUIBB COMPANY-13863634

PATIENT
  Sex: Female
  Weight: 77 kg

DRUGS (5)
  1. COUMADIN [Suspect]
     Indication: ATRIAL FIBRILLATION
  2. NORVASC [Concomitant]
  3. MONOPRIL [Concomitant]
  4. TENORMIN [Concomitant]
  5. BLACK COHOSH [Concomitant]

REACTIONS (3)
  - CONTUSION [None]
  - PAIN IN EXTREMITY [None]
  - SPIDER VEIN [None]
